FAERS Safety Report 8784380 (Version 1)
Quarter: 2012Q4

REPORT INFORMATION
  Report Type: 
  Country: GB (occurrence: GB)
  Receive Date: 20120913
  Receipt Date: 20120913
  Transmission Date: 20130627
  Serious: Yes (Hospitalization, Other)
  Sender: FDA-Public Use
  Company Number: GB-BRISTOL-MYERS SQUIBB COMPANY-16861445

PATIENT
  Age: 67 Year
  Sex: Male

DRUGS (4)
  1. YERVOY [Suspect]
     Indication: METASTATIC MALIGNANT MELANOMA
     Dosage: 2 cycles were given from 18Jun12 to 16Jul12
     Route: 042
     Dates: start: 20120618, end: 20120716
  2. LANSOPRAZOLE [Concomitant]
  3. RAMIPRIL [Concomitant]
  4. DEXAMETHASONE [Concomitant]

REACTIONS (2)
  - Colitis [Recovered/Resolved]
  - Splenomegaly [Unknown]
